FAERS Safety Report 16493491 (Version 1)
Quarter: 2019Q2

REPORT INFORMATION
  Report Type: Spontaneous
  Country: US (occurrence: US)
  Receive Date: 20190628
  Receipt Date: 20190628
  Transmission Date: 20190711
  Serious: No
  Sender: FDA-Public Use
  Company Number: US-INDIVIOR LIMITED-INDV-118733-2019

PATIENT
  Age: 55 Year
  Sex: Male

DRUGS (4)
  1. SUBLOCADE [Suspect]
     Active Substance: BUPRENORPHINE
     Dosage: 75%, MONTHLY
     Route: 058
     Dates: start: 20181226, end: 201901
  2. SUBLOCADE [Suspect]
     Active Substance: BUPRENORPHINE
     Dosage: 50%, MONTHLY
     Route: 058
     Dates: start: 20190123, end: 201902
  3. SUBLOCADE [Suspect]
     Active Substance: BUPRENORPHINE
     Dosage: 25%, MONTHLY
     Route: 058
     Dates: start: 20190220, end: 201903
  4. SUBLOCADE [Suspect]
     Active Substance: BUPRENORPHINE
     Indication: DRUG DEPENDENCE
     Dosage: 100 MILLIGRAM, QMO
     Route: 065
     Dates: start: 20180502

REACTIONS (2)
  - Prescribed underdose [Recovered/Resolved]
  - No adverse event [Unknown]

NARRATIVE: CASE EVENT DATE: 20181226
